FAERS Safety Report 4604277-9 (Version None)
Quarter: 2005Q1

REPORT INFORMATION
  Report Type: 
  Country: None (occurrence: None)
  Receive Date: 20050308
  Receipt Date: 20050308
  Transmission Date: 20050727
  Serious: Yes (Hospitalization)
  Sender: FDA-Public Use
  Company Number: None

PATIENT
  Sex: Male
  Weight: 83.4619 kg

DRUGS (3)
  1. GABAPENTIN [Suspect]
  2. TRAZODONE HCL [Suspect]
     Dosage: 300 MG QHS
  3. CLONAZEPAM [Suspect]
     Dosage: 0.25 TID PRN

REACTIONS (1)
  - FALL [None]
